FAERS Safety Report 4443732-1 (Version None)
Quarter: 2004Q3

REPORT INFORMATION
  Report Type: 
  Country: None (occurrence: None)
  Receive Date: 20040729
  Receipt Date: 20040419
  Transmission Date: 20050211
  Serious: Yes (Death)
  Sender: FDA-Public Use
  Company Number: USA-2004-0014654

PATIENT
  Age: 23 Year
  Sex: Male
  Weight: 108.8 kg

DRUGS (11)
  1. MORPHINE SULFATE [Suspect]
  2. COCAINE [Suspect]
  3. AMITRIPTYLINE HCL [Suspect]
  4. DIPHENHYDRAMINE HCL [Suspect]
  5. ZOLPIDEM TARTRATE [Suspect]
  6. NEURONTIN [Concomitant]
  7. EFFEXOR [Concomitant]
  8. CELEBREX [Concomitant]
  9. NEXIUM [Concomitant]
  10. TOPAMAX [Concomitant]
  11. CLONAZEPAM [Concomitant]

REACTIONS (2)
  - ACCIDENTAL OVERDOSE [None]
  - MULTIPLE DRUG OVERDOSE [None]
